FAERS Safety Report 7486491-0 (Version None)
Quarter: 2011Q2

REPORT INFORMATION
  Report Type: 
  Country: None (occurrence: None)
  Receive Date: 20110517
  Receipt Date: 20100517
  Transmission Date: 20111010
  Serious: No
  Sender: FDA-Public Use
  Company Number: US-NOVEN-ALL1-2010-02884

PATIENT

DRUGS (3)
  1. DAYTRANA [Suspect]
     Dosage: 10 MG, UNKNOWN
     Route: 062
     Dates: start: 20080101, end: 20090101
  2. DAYTRANA [Suspect]
     Dosage: 20 MG, 1X/DAY:QD
     Route: 062
     Dates: start: 20090101, end: 20100101
  3. DAYTRANA [Suspect]
     Dosage: 30 MG, 1X/DAY:QD
     Route: 062
     Dates: start: 20100101

REACTIONS (4)
  - TOOTH DISORDER [None]
  - APPLICATION SITE DISCOLOURATION [None]
  - APPLICATION SITE PAIN [None]
  - DRUG ADMINISTERED AT INAPPROPRIATE SITE [None]
